FAERS Safety Report 25369941 (Version 2)
Quarter: 2025Q2

REPORT INFORMATION
  Report Type: Report from Study
  Country: CA (occurrence: CA)
  Receive Date: 20250528
  Receipt Date: 20250623
  Transmission Date: 20250717
  Serious: Yes (Hospitalization)
  Sender: EISAI
  Company Number: CA-Eisai-EC-2025-189839

PATIENT
  Age: 63 Year
  Sex: Female
  Weight: 116.1 kg

DRUGS (3)
  1. LENVIMA [Suspect]
     Active Substance: LENVATINIB
     Indication: Endometrial cancer
     Dates: start: 20250516, end: 202505
  2. KEYTRUDA [Concomitant]
     Active Substance: PEMBROLIZUMAB
     Indication: Endometrial cancer
  3. PERINDOPRIL [Concomitant]
     Active Substance: PERINDOPRIL

REACTIONS (2)
  - Hypertension [Recovering/Resolving]
  - Headache [Unknown]

NARRATIVE: CASE EVENT DATE: 20250501
